FAERS Safety Report 25459370 (Version 7)
Quarter: 2025Q4

REPORT INFORMATION
  Report Type: Report from Study
  Country: US (occurrence: US)
  Receive Date: 20250620
  Receipt Date: 20251113
  Transmission Date: 20260118
  Serious: Yes (Hospitalization, Other)
  Sender: TAKEDA
  Company Number: US-TAKEDA-2025TUS056010

PATIENT
  Sex: Female

DRUGS (8)
  1. LANADELUMAB [Suspect]
     Active Substance: LANADELUMAB
     Indication: Immune system disorder
     Dosage: 300 MILLIGRAM, Q2WEEKS
     Dates: start: 202505
  2. LANADELUMAB [Suspect]
     Active Substance: LANADELUMAB
     Dosage: UNK UNK, Q2WEEKS
     Dates: start: 202506
  3. LANADELUMAB [Suspect]
     Active Substance: LANADELUMAB
     Dosage: 300 MILLIGRAM, Q2WEEKS
  4. EKTERLY [Suspect]
     Active Substance: SEBETRALSTAT
     Indication: Product used for unknown indication
     Dosage: UNK
  5. XOLAIR [Concomitant]
     Active Substance: OMALIZUMAB
     Indication: Urticaria
     Dosage: UNK
  6. XOLAIR [Concomitant]
     Active Substance: OMALIZUMAB
     Indication: Idiopathic urticaria
  7. RUCONEST [Concomitant]
     Active Substance: CONESTAT ALFA
     Dosage: UNK
  8. ANDEMBRY [Concomitant]
     Active Substance: GARADACIMAB-GXII
     Dosage: UNK

REACTIONS (8)
  - Pancreatitis [Unknown]
  - Anaphylactic reaction [Unknown]
  - Hereditary angioedema [Unknown]
  - Stress [Unknown]
  - Anxiety [Unknown]
  - Emotional distress [Unknown]
  - Vomiting [Unknown]
  - Injection site erythema [Unknown]
